FAERS Safety Report 4527643-9 (Version None)
Quarter: 2004Q4

REPORT INFORMATION
  Report Type: 
  Country: None (occurrence: None)
  Receive Date: 20041215
  Receipt Date: 20040823
  Transmission Date: 20050328
  Serious: Yes (Hospitalization, Other)
  Sender: FDA-Public Use
  Company Number: FRWYE994823AUG04

PATIENT
  Age: 65 Year

DRUGS (2)
  1. ENBREL [Suspect]
     Indication: POLYARTHRITIS
     Route: 058
     Dates: start: 20030516, end: 20040715
  2. METHOTREXATE [Suspect]
     Route: 048
     Dates: start: 20020911, end: 20040715

REACTIONS (1)
  - NON-HODGKIN'S LYMPHOMA [None]
